FAERS Safety Report 7834842-7 (Version None)
Quarter: 2011Q4

REPORT INFORMATION
  Report Type: 
  Country: None (occurrence: None)
  Receive Date: 20111024
  Receipt Date: 20111019
  Transmission Date: 20120403
  Serious: Yes (Other)
  Sender: FDA-Public Use
  Company Number: JP-B.I. PHARMACEUTICALS,INC./RIDGEFIELD-2011-BP-22977NB

PATIENT
  Age: 90 Year
  Sex: Female

DRUGS (5)
  1. VERAPAMIL HCL [Concomitant]
     Route: 065
  2. ALDACTONE [Concomitant]
     Route: 065
  3. PREDNISOLONE [Concomitant]
     Indication: PEMPHIGOID
     Route: 065
  4. CLARITHROMYCIN [Concomitant]
     Route: 065
  5. PRADAXA [Suspect]
     Dosage: 220 MG
     Route: 048
     Dates: start: 20110722

REACTIONS (2)
  - PEMPHIGOID [None]
  - SHOCK [None]
